FAERS Safety Report 4459860-0 (Version None)
Quarter: 2004Q3

REPORT INFORMATION
  Report Type: 
  Country: None (occurrence: None)
  Receive Date: 20040923
  Receipt Date: 20040827
  Transmission Date: 20050211
  Serious: Yes (Hospitalization)
  Sender: FDA-Public Use
  Company Number: DSA_24954_2004

PATIENT
  Age: 46 Year
  Sex: Female
  Weight: 74.3899 kg

DRUGS (7)
  1. TEMESTA [Suspect]
     Indication: BIPOLAR DISORDER
     Dosage: 2.5 MG TID PO
     Route: 048
  2. SEROQUEL [Suspect]
     Indication: BIPOLAR DISORDER
     Dosage: 200 MG Q DAY PO
     Route: 048
     Dates: start: 20040422, end: 20040422
  3. ZYPREXA [Concomitant]
  4. DALMADORM [Concomitant]
  5. LITHIUM CARBONATE [Concomitant]
  6. DEPAKENE [Concomitant]
  7. AKINETON [Concomitant]

REACTIONS (5)
  - DEPRESSED LEVEL OF CONSCIOUSNESS [None]
  - EYE MOVEMENT DISORDER [None]
  - MIOSIS [None]
  - PUPILLARY LIGHT REFLEX TESTS ABNORMAL [None]
  - RESPIRATORY FAILURE [None]
